FAERS Safety Report 6736340-0 (Version None)
Quarter: 2010Q2

REPORT INFORMATION
  Report Type: 
  Country: None (occurrence: None)
  Receive Date: 20100520
  Receipt Date: 20100520
  Transmission Date: 20101027
  Serious: Yes (Other)
  Sender: FDA-Public Use
  Company Number: None

PATIENT
  Sex: Female
  Weight: 68.2 kg

DRUGS (1)
  1. RECLAST 5MG/ 100ML EVERY YEAR  IVPB [Suspect]
     Indication: OSTEOPOROSIS
     Dosage: 5MG/100ML EVERY YEAR IVPB
     Dates: start: 20100109

REACTIONS (1)
  - OSTEOPOROSIS [None]
